FAERS Safety Report 16544681 (Version 1)
Quarter: 2019Q3

REPORT INFORMATION
  Report Type: Spontaneous
  Country: US (occurrence: US)
  Receive Date: 20190708
  Receipt Date: 20190708
  Transmission Date: 20191004
  Serious: Yes (Hospitalization)
  Sender: FDA-Public Use
  Company Number: None

PATIENT
  Age: 61 Year
  Sex: Male

DRUGS (9)
  1. ZYTIGA [Suspect]
     Active Substance: ABIRATERONE ACETATE
     Indication: PROSTATE CANCER
     Route: 048
     Dates: start: 20180804
  2. PREDNISONE 5 MG [Concomitant]
     Active Substance: PREDNISONE
     Dates: start: 20180706
  3. TIMOLOL MAL SOL 0.5% OP [Concomitant]
     Dates: start: 20180706
  4. TAMSULOSIN 0.4 [Concomitant]
     Dates: start: 20180904
  5. PRAVASTATIN 20 MG [Concomitant]
     Active Substance: PRAVASTATIN
  6. BICALUTAMIDE 50 MG [Concomitant]
     Active Substance: BICALUTAMIDE
     Dates: start: 20180706
  7. ENTECAVIR 1 MG [Concomitant]
     Dates: start: 20190624
  8. AMLODIPINE 2.5 MG [Concomitant]
     Active Substance: AMLODIPINE BESYLATE
     Dates: start: 20190318
  9. METOPROLOL SUC 50 MG ER [Concomitant]
     Dates: start: 20190129

REACTIONS (1)
  - Nephrolithiasis [None]

NARRATIVE: CASE EVENT DATE: 20190608
